FAERS Safety Report 24308475 (Version 1)
Quarter: 2024Q3

REPORT INFORMATION
  Report Type: Report from Study
  Country: CA (occurrence: CA)
  Receive Date: 20240911
  Receipt Date: 20240911
  Transmission Date: 20241017
  Serious: Yes (Hospitalization)
  Sender: JOHNSON AND JOHNSON
  Company Number: CA-JNJFOC-20240820315

PATIENT
  Age: 15 Year
  Sex: Male
  Weight: 64 kg

DRUGS (3)
  1. REMICADE [Suspect]
     Active Substance: INFLIXIMAB
     Indication: Crohn^s disease
     Route: 041
  2. REMICADE [Suspect]
     Active Substance: INFLIXIMAB
     Dosage: ROUNDED TO THE FULL VIAL AT WEEKS 2, 6 THEN EVERY 6 WEEKS
     Route: 041
  3. REMICADE [Suspect]
     Active Substance: INFLIXIMAB
     Dosage: ROUNDED UP TO THE FULL VIAL AT WEEKS 0
     Route: 041

REACTIONS (2)
  - Hospitalisation [Unknown]
  - Off label use [Unknown]
